FAERS Safety Report 9086405 (Version 1)
Quarter: 2013Q1

REPORT INFORMATION
  Report Type: Report from Study
  Country: US (occurrence: US)
  Receive Date: 20130131
  Receipt Date: 20130131
  Transmission Date: 20140127
  Serious: No
  Sender: FDA-Public Use
  Company Number: US-ABBOTT-12P-163-1004270-00

PATIENT
  Sex: Male
  Weight: 75 kg

DRUGS (1)
  1. HUMIRA [Suspect]
     Indication: PSORIASIS
     Route: 058

REACTIONS (6)
  - Visual acuity reduced [Not Recovered/Not Resolved]
  - Pruritus [Not Recovered/Not Resolved]
  - Laceration [Recovered/Resolved]
  - Wound haemorrhage [Recovered/Resolved]
  - Wound secretion [Recovered/Resolved]
  - Rash [Not Recovered/Not Resolved]
